FAERS Safety Report 21886072 (Version 7)
Quarter: 2024Q1

REPORT INFORMATION
  Report Type: Spontaneous
  Country: JP (occurrence: None)
  Receive Date: 20230119
  Receipt Date: 20240214
  Transmission Date: 20240410
  Serious: Yes (Death, Hospitalization, Disabling)
  Sender: FDA-Public Use
  Company Number: 2023A009359

PATIENT
  Age: 71 Year
  Sex: Male

DRUGS (16)
  1. DAPAGLIFLOZIN [Suspect]
     Active Substance: DAPAGLIFLOZIN
     Indication: Cardiac failure chronic
     Route: 048
     Dates: start: 20220420, end: 20220727
  2. OPDIVO [Suspect]
     Active Substance: NIVOLUMAB
     Indication: Lung adenocarcinoma
     Dosage: 360 MG
     Route: 041
     Dates: start: 20220329, end: 20220622
  3. YERVOY [Suspect]
     Active Substance: IPILIMUMAB
     Indication: Lung adenocarcinoma
     Dosage: 65 MG
     Route: 041
     Dates: start: 20220329, end: 2022
  4. LYUMJEV [Concomitant]
     Active Substance: INSULIN LISPRO-AABC
     Dosage: SEE NARRATIVE
     Route: 065
  5. INSULIN GLARGINE [Concomitant]
     Active Substance: INSULIN GLARGINE
     Dosage: 7 IU BEFORE DINNER (AT 18:00)
  6. ENTRESTO [Concomitant]
     Active Substance: SACUBITRIL\VALSARTAN
     Indication: Cardiac failure chronic
     Dosage: AFTER BREAKFAST AND DINNER
     Route: 048
     Dates: start: 20220420
  7. SPIRONOLACTONE [Concomitant]
     Active Substance: SPIRONOLACTONE
     Indication: Cardiac failure chronic
     Dosage: AFTER BREAKFAST, 25 MG 1 TABLET
     Route: 048
     Dates: start: 20220420
  8. SILODOSIN OD [Concomitant]
     Indication: Benign prostatic hyperplasia
     Dosage: AFTER AND DINNER, 4 MG/DAY
     Route: 048
  9. BISOPROLOL [Concomitant]
     Active Substance: BISOPROLOL\BISOPROLOL FUMARATE
     Indication: Cardiac failure chronic
     Dosage: AFTER BREAKFAST
     Route: 048
  10. BISOPROLOL [Concomitant]
     Active Substance: BISOPROLOL\BISOPROLOL FUMARATE
     Indication: Cardiac failure chronic
     Dosage: AFTER BREAKFAST
     Route: 048
  11. MAGNESIUM OXIDE [Concomitant]
     Active Substance: MAGNESIUM OXIDE
     Dosage: AFTER LUNCH AND DINNER
     Route: 048
  12. MAGNESIUM OXIDE [Concomitant]
     Active Substance: MAGNESIUM OXIDE
     Dosage: AFTER LUNCH AND DINNER
     Route: 048
  13. AMITIZA [Concomitant]
     Active Substance: LUBIPROSTONE
     Dosage: AFTER DINNER
     Route: 048
  14. CARBOCYSTEINE [Concomitant]
     Active Substance: CARBOCYSTEINE
     Dosage: AFTER BREAKFAST, LUNCH, AND DINNER
     Route: 048
  15. TERBINAFINE HYDROCHLORIDE [Concomitant]
     Active Substance: TERBINAFINE HYDROCHLORIDE
     Dosage: DOSE UNKNOWN
     Route: 062
  16. KETOCONAZOLE [Concomitant]
     Active Substance: KETOCONAZOLE
     Dosage: DOSE UNKNOWN
     Route: 062

REACTIONS (11)
  - Fulminant type 1 diabetes mellitus [Fatal]
  - Diabetic ketoacidosis [Fatal]
  - Liver disorder [Fatal]
  - Cardiac failure chronic [Fatal]
  - Hyperkalaemia [Unknown]
  - Acute kidney injury [Unknown]
  - Thyroiditis [Unknown]
  - Presbyopia [Unknown]
  - Constipation [Unknown]
  - Hyponatraemia [Unknown]
  - Inappropriate antidiuretic hormone secretion [Unknown]

NARRATIVE: CASE EVENT DATE: 20220101
